FAERS Safety Report 4684921-0 (Version None)
Quarter: 2005Q2

REPORT INFORMATION
  Report Type: 
  Country: None (occurrence: None)
  Receive Date: 20050606
  Receipt Date: 20050606
  Transmission Date: 20051028
  Serious: Yes (Other)
  Sender: FDA-Public Use
  Company Number: None

PATIENT
  Age: 56 Year
  Sex: Male
  Weight: 100.9 kg

DRUGS (16)
  1. TEMAZEPAM [Suspect]
     Dosage: 30 MG HS BY MOUTH
     Route: 048
     Dates: start: 20050223, end: 20050324
  2. LITHIUM CARBONATE [Concomitant]
  3. ASCORBIC ACID [Concomitant]
  4. ASPIRIN [Concomitant]
  5. DOCUSATE SODIUM [Concomitant]
  6. FLUNISOLIDE [Concomitant]
  7. HYDROCHLOROTHIAZIDE [Concomitant]
  8. IPRATROPIUM BR [Concomitant]
  9. MECLIZINE HCL [Concomitant]
  10. MULTI-VITAMIN [Concomitant]
  11. NIACIN [Concomitant]
  12. OXYBUTYNIN CHLORIDE [Concomitant]
  13. PYRIDOXINE HCL [Concomitant]
  14. SUCRALFATE [Concomitant]
  15. THIAMINE HCL [Concomitant]
  16. ACETAMINOPHEN [Concomitant]

REACTIONS (1)
  - INSOMNIA [None]
